FAERS Safety Report 8394451-0 (Version None)
Quarter: 2012Q2

REPORT INFORMATION
  Report Type: 
  Country: None (occurrence: None)
  Receive Date: 20120525
  Receipt Date: 20120525
  Transmission Date: 20120825
  Serious: Yes (Disabling)
  Sender: FDA-Public Use
  Company Number: None

PATIENT
  Age: 48 Year
  Sex: Male
  Weight: 74.8435 kg

DRUGS (1)
  1. LEVOFLOXACIN [Suspect]
     Indication: PROSTATITIS
     Dosage: 750 1 PO
     Route: 048
     Dates: start: 20120412, end: 20120417

REACTIONS (3)
  - PSYCHIATRIC SYMPTOM [None]
  - MUSCLE TIGHTNESS [None]
  - TENDON PAIN [None]
